FAERS Safety Report 8168173-5 (Version None)
Quarter: 2012Q1

REPORT INFORMATION
  Report Type: 
  Country: None (occurrence: None)
  Receive Date: 20120227
  Receipt Date: 20120221
  Transmission Date: 20120608
  Serious: Yes (Death, Hospitalization)
  Sender: FDA-Public Use
  Company Number: PHHY2012IT015692

PATIENT
  Age: 49 Year
  Sex: Female

DRUGS (3)
  1. PREDNISONE [Concomitant]
     Dosage: 0.1 MG/KG,
  2. CYCLOSPORINE [Suspect]
     Indication: SYSTEMIC LUPUS ERYTHEMATOSUS
     Dosage: 200 MG
     Route: 048
     Dates: start: 20090201
  3. HYDROXYCHLOROQUINE SULFATE [Concomitant]
     Dosage: 400 MG, DAILY
     Route: 048

REACTIONS (6)
  - CARDIAC FAILURE ACUTE [None]
  - ACUTE RESPIRATORY FAILURE [None]
  - SEPSIS [None]
  - DIFFUSE LARGE B-CELL LYMPHOMA [None]
  - EPSTEIN-BARR VIRUS INFECTION [None]
  - PYREXIA [None]
